FAERS Safety Report 19718991 (Version 1)
Quarter: 2021Q3

REPORT INFORMATION
  Report Type: Spontaneous
  Country: US (occurrence: US)
  Receive Date: 20210818
  Receipt Date: 20210818
  Transmission Date: 20211014
  Serious: No
  Sender: FDA-Public Use
  Company Number: None

PATIENT
  Age: 60 Year
  Sex: Male

DRUGS (1)
  1. KYNMOBI [Suspect]
     Active Substance: APOMORPHINE HYDROCHLORIDE
     Route: 060
     Dates: start: 202106

REACTIONS (3)
  - Lip swelling [None]
  - Hypoaesthesia oral [None]
  - Oral discomfort [None]

NARRATIVE: CASE EVENT DATE: 20210818
